FAERS Safety Report 13586463 (Version 2)
Quarter: 2017Q2

REPORT INFORMATION
  Report Type: Spontaneous
  Country: JP (occurrence: JP)
  Receive Date: 20170526
  Receipt Date: 20170605
  Transmission Date: 20170830
  Serious: Yes (Death, Other)
  Sender: FDA-Public Use
  Company Number: JP-009507513-1705JPN002369J

PATIENT
  Age: 82 Year
  Sex: Female
  Weight: 42 kg

DRUGS (11)
  1. TAZOPIPE [Concomitant]
     Active Substance: PIPERACILLIN SODIUM\TAZOBACTAM SODIUM
     Indication: PERITONITIS
     Dosage: 4.5 G, QID
     Route: 051
     Dates: start: 20160923, end: 20161004
  2. CLEXANE [Concomitant]
     Active Substance: ENOXAPARIN SODIUM
     Indication: THROMBOSIS PROPHYLAXIS
     Dosage: 2000 IU, QD
     Route: 051
     Dates: start: 20160924, end: 20160930
  3. GRAN [Concomitant]
     Active Substance: FILGRASTIM
     Indication: NEUTROPENIA
     Dosage: 75 MICROGRAM, QD
     Route: 051
     Dates: start: 20160926, end: 20160926
  4. VANCOMYCIN [Concomitant]
     Active Substance: VANCOMYCIN
     Indication: PERITONITIS
     Dosage: 0.5 G, BID
     Route: 051
     Dates: start: 20160930, end: 20161004
  5. CANCIDAS [Suspect]
     Active Substance: CASPOFUNGIN ACETATE
     Indication: ABDOMINAL ABSCESS
     Dosage: 70 MG, QD
     Route: 041
     Dates: start: 20160926, end: 20160926
  6. DEXART [Concomitant]
     Active Substance: DEXAMETHASONE SODIUM PHOSPHATE
     Indication: PROPHYLAXIS
     Dosage: 1.7 MG, QD
     Route: 051
     Dates: start: 20160924, end: 20160929
  7. CRAVIT [Concomitant]
     Active Substance: LEVOFLOXACIN
     Indication: PERITONITIS
     Dosage: 500 MG, QD
     Route: 051
     Dates: start: 20160926, end: 20160929
  8. CANCIDAS [Suspect]
     Active Substance: CASPOFUNGIN ACETATE
     Indication: ABDOMINAL ABSCESS
     Dosage: 50 MG, QD
     Route: 041
     Dates: start: 20160927, end: 20161004
  9. OMEPRAZOLE. [Concomitant]
     Active Substance: OMEPRAZOLE
     Indication: PROPHYLAXIS AGAINST GASTROINTESTINAL ULCER
     Dosage: 20 MG, BID
     Route: 051
     Dates: start: 20160924, end: 20161004
  10. INOVAN [Concomitant]
     Active Substance: DOPAMINE HYDROCHLORIDE
     Indication: SEPTIC SHOCK
     Dosage: 50 ML, QD
     Route: 051
     Dates: start: 20160924, end: 20160926
  11. FENTANYL. [Concomitant]
     Active Substance: FENTANYL
     Indication: ANALGESIC THERAPY
     Dosage: 0.5 MG, BID
     Route: 051
     Dates: start: 20161001, end: 20161004

REACTIONS (2)
  - Peritonitis [Fatal]
  - Drug ineffective [Unknown]

NARRATIVE: CASE EVENT DATE: 20161004
